FAERS Safety Report 12758123 (Version 1)
Quarter: 2016Q3

REPORT INFORMATION
  Report Type: Spontaneous
  Country: US (occurrence: US)
  Receive Date: 20160916
  Receipt Date: 20160916
  Transmission Date: 20161109
  Serious: No
  Sender: FDA-Public Use
  Company Number: None

PATIENT
  Age: 51 Year
  Sex: Male

DRUGS (1)
  1. TEMOZOLOMIDE CAP 140MG [Suspect]
     Active Substance: TEMOZOLOMIDE
     Indication: BRAIN NEOPLASM MALIGNANT
     Route: 048

REACTIONS (1)
  - Therapy non-responder [None]

NARRATIVE: CASE EVENT DATE: 20160801
